FAERS Safety Report 5114537-3 (Version None)
Quarter: 2006Q3

REPORT INFORMATION
  Report Type: 
  Country: None (occurrence: None)
  Receive Date: 20060926
  Receipt Date: 20060919
  Transmission Date: 20061208
  Serious: Yes (Hospitalization)
  Sender: FDA-Public Use
  Company Number: PHBS2006GT14388

PATIENT
  Age: 15 Year
  Sex: Male

DRUGS (3)
  1. FORADIL [Suspect]
     Indication: ASTHMA
     Dosage: UNK, BID
     Dates: start: 20060916, end: 20060917
  2. ALBUTEROL SPIROS [Concomitant]
     Dosage: 8 MG/DAY
     Route: 048
  3. ALBUTEROL SPIROS [Concomitant]
     Dosage: 4 DF/DAY

REACTIONS (2)
  - ASTHMATIC CRISIS [None]
  - PNEUMONIA [None]
